FAERS Safety Report 4434899-X (Version None)
Quarter: 2004Q3

REPORT INFORMATION
  Report Type: 
  Country: None (occurrence: None)
  Receive Date: 20040726
  Receipt Date: 20040506
  Transmission Date: 20050211
  Serious: No
  Sender: FDA-Public Use
  Company Number: USA040566947

PATIENT
  Age: 76 Year
  Sex: Female
  Weight: 91 kg

DRUGS (10)
  1. FORTEO [Suspect]
     Indication: OSTEOPOROSIS
     Dosage: 20 UG DAY
     Dates: start: 20040401
  2. INSULIN [Concomitant]
  3. ZOCOR [Concomitant]
  4. MIRAPEX (MIRAPEX) [Concomitant]
  5. TOPAMAX [Concomitant]
  6. DILTIAZEM [Concomitant]
  7. DIOVAN [Concomitant]
  8. BENADRYL [Concomitant]
  9. ASPIRIN [Concomitant]
  10. VITAMIN NOS [Concomitant]

REACTIONS (4)
  - ASTHENIA [None]
  - CONSTIPATION [None]
  - HAEMORRHAGE [None]
  - OEDEMA PERIPHERAL [None]
